FAERS Safety Report 12849327 (Version 1)
Quarter: 2016Q4

REPORT INFORMATION
  Report Type: Report from Study
  Country: CN (occurrence: CN)
  Receive Date: 20161014
  Receipt Date: 20161014
  Transmission Date: 20170207
  Serious: Yes (Hospitalization)
  Sender: FDA-Public Use
  Company Number: CN-FERRINGPH-2016FE05381

PATIENT
  Age: 82 Year
  Sex: Male
  Weight: 65 kg

DRUGS (3)
  1. FE 200486 [Suspect]
     Active Substance: DEGARELIX ACETATE
     Indication: PROSTATE CANCER
     Dosage: 80 MG, MONTHLY
     Route: 058
     Dates: start: 20141030
  2. FE 200486 [Suspect]
     Active Substance: DEGARELIX ACETATE
     Dosage: 80 MG, MONTHLY
     Route: 058
     Dates: start: 20131128, end: 20140929
  3. FE 200486 [Suspect]
     Active Substance: DEGARELIX ACETATE
     Dosage: 240 MG, ONCE/SINGLE
     Route: 058
     Dates: start: 20131031, end: 20131031

REACTIONS (1)
  - Diabetes mellitus [Recovered/Resolved]

NARRATIVE: CASE EVENT DATE: 20160617
